FAERS Safety Report 13572311 (Version 1)
Quarter: 2017Q2

REPORT INFORMATION
  Report Type: Spontaneous
  Country: JP (occurrence: JP)
  Receive Date: 20170523
  Receipt Date: 20170523
  Transmission Date: 20170830
  Serious: Yes (Other)
  Sender: FDA-Public Use
  Company Number: JP-009507513-1705JPN001865J

PATIENT
  Age: 47 Year
  Sex: Male

DRUGS (1)
  1. ESLAX INTRAVENOUS 50MG/5.0ML [Suspect]
     Active Substance: ROCURONIUM BROMIDE
     Dosage: UNK
     Route: 051
     Dates: start: 201408, end: 201408

REACTIONS (1)
  - Rhabdomyolysis [Unknown]
